FAERS Safety Report 9268805 (Version 1)
Quarter: 2013Q2

REPORT INFORMATION
  Report Type: Spontaneous
  Country: US (occurrence: US)
  Receive Date: 20130502
  Receipt Date: 20130502
  Transmission Date: 20140414
  Serious: No
  Sender: FDA-Public Use
  Company Number: US-009507513-1304USA017554

PATIENT
  Sex: Female

DRUGS (1)
  1. NEXPLANON [Suspect]
     Indication: CONTRACEPTION
     Dosage: ONCE, THREE YEARS
     Route: 059
     Dates: end: 201304

REACTIONS (2)
  - Device breakage [Recovered/Resolved]
  - Myalgia [Unknown]
